FAERS Safety Report 5321764-9 (Version None)
Quarter: 2007Q2

REPORT INFORMATION
  Report Type: 
  Country: None (occurrence: None)
  Receive Date: 20070510
  Receipt Date: 20070430
  Transmission Date: 20071010
  Serious: Yes (Hospitalization)
  Sender: FDA-Public Use
  Company Number: DE-PFIZER INC-2007030560

PATIENT
  Age: 55 Year
  Sex: Female

DRUGS (5)
  1. VFEND [Suspect]
     Indication: ASPERGILLOSIS
     Route: 042
     Dates: start: 20070403, end: 20070416
  2. VFEND [Suspect]
     Indication: CANDIDIASIS
  3. CLONT [Concomitant]
  4. IMIPENEM [Concomitant]
  5. ZYVOX [Concomitant]

REACTIONS (1)
  - RHABDOMYOLYSIS [None]
